FAERS Safety Report 23447006 (Version 1)
Quarter: 2024Q1

REPORT INFORMATION
  Report Type: Spontaneous
  Country: US (occurrence: None)
  Receive Date: 20240125
  Receipt Date: 20240125
  Transmission Date: 20240410
  Serious: Yes (unspecified)
  Sender: FDA-Public Use
  Company Number: None

PATIENT
  Age: 56 Year
  Sex: Male
  Weight: 111.6 kg

DRUGS (3)
  1. ONFI [Suspect]
     Active Substance: CLOBAZAM
     Indication: Seizure
     Dosage: FREQUENCY : TWICE A DAY;?
     Route: 048
     Dates: start: 20231228, end: 20240125
  2. brivaracetam (BRIVIACT) [Concomitant]
     Dates: start: 20231228
  3. lacosamide (VIMPAT) [Concomitant]
     Dates: start: 20231228

REACTIONS (5)
  - Liver function test increased [None]
  - Drug reaction with eosinophilia and systemic symptoms [None]
  - Rash [None]
  - Sedation [None]
  - Fatigue [None]

NARRATIVE: CASE EVENT DATE: 20240123
